FAERS Safety Report 8816917 (Version 1)
Quarter: 2012Q4

REPORT INFORMATION
  Report Type: Spontaneous
  Country: CN (occurrence: None)
  Receive Date: 20121002
  Receipt Date: 20121002
  Transmission Date: 20130627
  Serious: Yes (Hospitalization)
  Sender: FDA-Public Use
  Company Number: B0833634A

PATIENT
  Age: 30 Year
  Sex: Female

DRUGS (3)
  1. BUPROPION HYDROCHLORIDE [Suspect]
  2. VENLAFAXINE HYDROCHLORIDE [Suspect]
  3. LORAZEPAM [Concomitant]

REACTIONS (10)
  - Suicide attempt [None]
  - Myoclonus [None]
  - Pyrexia [None]
  - Tachycardia [None]
  - Somnolence [None]
  - Confusional state [None]
  - Respiratory distress [None]
  - Blood pressure diastolic decreased [None]
  - PO2 decreased [None]
  - Central nervous system necrosis [None]
